FAERS Safety Report 25746774 (Version 1)
Quarter: 2025Q3

REPORT INFORMATION
  Report Type: Other
  Country: CN (occurrence: CN)
  Receive Date: 20250901
  Receipt Date: 20250901
  Transmission Date: 20251020
  Serious: Yes (Hospitalization, Other)
  Sender: SPECTRA MEDICAL DEVICES, LLC
  Company Number: CN-Spectra Medical Devices, LLC-2183564

PATIENT
  Age: 36 Year
  Sex: Female

DRUGS (2)
  1. LIDOCAINE HYDROCHLORIDE [Suspect]
     Active Substance: LIDOCAINE HYDROCHLORIDE
     Indication: Epidural anaesthesia
  2. ROPIVACAINE [Suspect]
     Active Substance: ROPIVACAINE

REACTIONS (4)
  - Paraplegia [Recovered/Resolved]
  - Maternal exposure during delivery [Unknown]
  - Haemorrhage [Recovered/Resolved]
  - Ependymoma [Recovered/Resolved]
